FAERS Safety Report 21474668 (Version 1)
Quarter: 2022Q4

REPORT INFORMATION
  Report Type: Spontaneous
  Country: US (occurrence: None)
  Receive Date: 20221018
  Receipt Date: 20221018
  Transmission Date: 20230113
  Serious: Yes (Hospitalization)
  Sender: FDA-Public Use
  Company Number: None

PATIENT
  Age: 20 Year
  Sex: Female
  Weight: 49.9 kg

DRUGS (5)
  1. DEXAMETHASONE [Suspect]
     Active Substance: DEXAMETHASONE
     Dates: end: 20221005
  2. MERCAPTOPURINE [Suspect]
     Active Substance: MERCAPTOPURINE
     Dates: end: 20221007
  3. METHOTREXATE [Suspect]
     Active Substance: METHOTREXATE
     Dates: end: 20220907
  4. METHOTREXATE [Suspect]
     Active Substance: METHOTREXATE
     Dates: end: 20220907
  5. VINCRISTINE SULFATE [Suspect]
     Active Substance: VINCRISTINE SULFATE
     Dates: end: 20221005

REACTIONS (11)
  - Fatigue [None]
  - Asthenia [None]
  - Dyspnoea [None]
  - Vomiting [None]
  - Respiratory rate increased [None]
  - Blood glucose increased [None]
  - Blood potassium [None]
  - Blood sodium increased [None]
  - Anion gap [None]
  - Diabetic ketoacidosis [None]
  - Treatment noncompliance [None]

NARRATIVE: CASE EVENT DATE: 20221009
